FAERS Safety Report 4921718-8 (Version None)
Quarter: 2006Q1

REPORT INFORMATION
  Report Type: 
  Country: None (occurrence: None)
  Receive Date: 20060224
  Receipt Date: 20050524
  Transmission Date: 20060701
  Serious: No
  Sender: FDA-Public Use
  Company Number: US-BRISTOL-MYERS SQUIBB COMPANY-12980140

PATIENT
  Sex: Female

DRUGS (1)
  1. VAGISTAT-1 [Suspect]
     Route: 067
     Dates: start: 20050523, end: 20050523

REACTIONS (1)
  - GENITAL PRURITUS FEMALE [None]
